FAERS Safety Report 7320907-5 (Version None)
Quarter: 2011Q1

REPORT INFORMATION
  Report Type: 
  Country: None (occurrence: None)
  Receive Date: 20110228
  Receipt Date: 20110218
  Transmission Date: 20110831
  Serious: Yes (Other)
  Sender: FDA-Public Use
  Company Number: JP-MERCK-1102USA02416

PATIENT
  Age: 60 Year
  Sex: Female

DRUGS (3)
  1. JANUVIA [Suspect]
     Indication: TYPE 2 DIABETES MELLITUS
     Route: 048
     Dates: start: 20110113, end: 20110217
  2. NOVORAPID [Concomitant]
     Route: 065
  3. LANTUS [Concomitant]
     Route: 065

REACTIONS (1)
  - MACULAR OEDEMA [None]
